FAERS Safety Report 8058770-X (Version None)
Quarter: 2012Q1

REPORT INFORMATION
  Report Type: 
  Country: None (occurrence: None)
  Receive Date: 20120120
  Receipt Date: 20120116
  Transmission Date: 20120608
  Serious: No
  Sender: FDA-Public Use
  Company Number: US-BAYER-2012-001616

PATIENT
  Age: 23 Year
  Sex: Female

DRUGS (1)
  1. MIRENA [Suspect]
     Indication: CONTRACEPTION
     Dosage: 20 MCG/24HR, CONT
     Route: 015
     Dates: start: 20100301, end: 20110901

REACTIONS (5)
  - WEIGHT INCREASED [None]
  - DERMATITIS [None]
  - ECZEMA [None]
  - INJECTION SITE REACTION [None]
  - PIGMENTATION DISORDER [None]
